FAERS Safety Report 8816687 (Version 2)
Quarter: 2012Q4

REPORT INFORMATION
  Report Type: Spontaneous
  Country: US (occurrence: None)
  Receive Date: 20120928
  Receipt Date: 20121026
  Transmission Date: 20130627
  Serious: Yes (Hospitalization, Other)
  Sender: FDA-Public Use
  Company Number: 2012-000969

PATIENT
  Age: 81 Year
  Sex: Female

DRUGS (25)
  1. ACTONEL (RISEDRONATE SODIUM) TABLET, 35MG [Suspect]
     Indication: OSTEOPOROSIS
     Route: 048
     Dates: start: 20061108, end: 201103
  2. ACTONEL (RISEDRONATE SODIUM) TABLET, 35MG [Suspect]
     Indication: OSTEOPOROSIS PROPHYLAXIS
     Route: 048
     Dates: start: 20061108, end: 201103
  3. FOSAMAX (ALENDRONATE SODIUM) [Suspect]
     Indication: OSTEOPOROSIS
     Route: 048
     Dates: start: 20011222, end: 20051123
  4. FOSAMAX (ALENDRONATE SODIUM) [Suspect]
     Indication: OSTEOPOROSIS PROPHYLAXIS
     Route: 048
     Dates: start: 20011222, end: 20051123
  5. FOSAMAX [Suspect]
     Indication: OSTEOPOROSIS
     Dates: start: 20051123, end: 200608
  6. FOSAMAX [Suspect]
     Indication: OSTEOPOROSIS PROPHYLAXIS
     Dates: start: 20051123, end: 200608
  7. LOPRESSOR (METOPROLOL TARTRATE) [Concomitant]
  8. LISINOPRIL (LISINOPRIL) [Concomitant]
  9. LASIX /0003260/ (FUROSEMIDE) [Concomitant]
  10. KLOR-CON (POTASSIUM CHLORIDE) [Concomitant]
  11. SYNTHROID (LEVOTHYROXINE SODIUM) [Concomitant]
  12. EFFEXOR XR (VENLAFAXINE HYDROCHLORIDE) [Concomitant]
  13. OMEPRAZOLE (OMEPRAZOLE) [Concomitant]
  14. CELEBREX (CELECOXIB) [Concomitant]
  15. LIDODERM (LIDOCAINE) [Concomitant]
  16. NEURONTIN (GABAPENTIN) [Concomitant]
  17. HYDROCODONE BITARTRATE AND ACETAMINOPHEN (HYDROCODONE BITARTRATE, PARACETAMOL) [Concomitant]
  18. OSCAL D /00944201/ (CALCIUM CARBONATE, COLECALCIFEROL) [Concomitant]
  19. MULTIVITAMIN /00097801 (ASCORBIC ACID, CALCIUM PANTOTHENATE, ERGOCALCIFEROL, NICOTINAMIDE, PYRIDOXINE HYDROCHLORIDE, RETINAL, RIBOFLAVIN, THIAMINE HYDROCHLORIDE) [Concomitant]
  20. FIORICET (BUTALBITAL, CAFFEINE, PARACETAMOL) [Concomitant]
  21. TYLENOL ARTHRITIS (PARACETAMOL) [Concomitant]
  22. SANCTURA (TROSPIUM CHLORIDE) [Concomitant]
  23. FORTICAL /00371903/ (CALCITONIN, SALMON) [Concomitant]
  24. MIRALAX /00754501/ (MACROGOL) [Concomitant]
  25. FENTANYL (FENTANYL) [Concomitant]

REACTIONS (16)
  - Femur fracture [None]
  - Pathological fracture [None]
  - Comminuted fracture [None]
  - Fall [None]
  - Pain in extremity [None]
  - Bone disorder [None]
  - Pain [None]
  - Low turnover osteopathy [None]
  - Stress fracture [None]
  - Pulmonary embolism [None]
  - Heparin-induced thrombocytopenia [None]
  - Drug hypersensitivity [None]
  - Chronic obstructive pulmonary disease [None]
  - Urinary tract infection [None]
  - Osteitis deformans [None]
  - Cholecystitis [None]
